FAERS Safety Report 7440928-1 (Version None)
Quarter: 2011Q2

REPORT INFORMATION
  Report Type: 
  Country: None (occurrence: None)
  Receive Date: 20110427
  Receipt Date: 20110414
  Transmission Date: 20111010
  Serious: Yes (Hospitalization)
  Sender: FDA-Public Use
  Company Number: PHHY2011CA32013

PATIENT
  Sex: Male

DRUGS (1)
  1. SANDOSTATIN LAR [Suspect]
     Indication: ANGIODYSPLASIA
     Dosage: 30 MG, EVERY 4 WEEKS
     Route: 030
     Dates: start: 20091201

REACTIONS (2)
  - PULMONARY OEDEMA [None]
  - PNEUMONIA [None]
